FAERS Safety Report 18469145 (Version 1)
Quarter: 2020Q4

REPORT INFORMATION
  Report Type: Spontaneous
  Country: US (occurrence: US)
  Receive Date: 20201105
  Receipt Date: 20201105
  Transmission Date: 20210114
  Serious: No
  Sender: FDA-Public Use
  Company Number: US-BAUSCH-BL-2020-032364

PATIENT
  Age: 9 Decade
  Sex: Female
  Weight: 49.94 kg

DRUGS (1)
  1. ALAWAY [Suspect]
     Active Substance: KETOTIFEN FUMARATE
     Indication: EYE ALLERGY
     Dosage: START: PROBABLY A YEAR OR TWO BEFORE 2014
     Route: 031
     Dates: end: 2014

REACTIONS (1)
  - Drug ineffective [Unknown]
